FAERS Safety Report 6828391-2 (Version None)
Quarter: 2010Q3

REPORT INFORMATION
  Report Type: 
  Country: None (occurrence: None)
  Receive Date: 20100709
  Receipt Date: 20070208
  Transmission Date: 20110219
  Serious: No
  Sender: FDA-Public Use
  Company Number: US-PFIZER INC-2007011098

PATIENT
  Sex: Female

DRUGS (4)
  1. CHANTIX [Suspect]
     Route: 048
     Dates: start: 20070101, end: 20070201
  2. LEXAPRO [Concomitant]
     Route: 048
  3. ANTIBIOTICS [Concomitant]
     Route: 048
  4. ALL OTHER THERAPEUTIC PRODUCTS [Concomitant]
     Route: 048

REACTIONS (1)
  - INSOMNIA [None]
